FAERS Safety Report 9915004 (Version 3)
Quarter: 2015Q3

REPORT INFORMATION
  Report Type: Spontaneous
  Country: FR (occurrence: FR)
  Receive Date: 20140220
  Receipt Date: 20150702
  Transmission Date: 20151125
  Serious: Yes (Hospitalization, Other)
  Sender: FDA-Public Use
  Company Number: FR-BMSGILMSD-2014-0092586

PATIENT
  Age: 68 Year
  Sex: Male
  Weight: 66 kg

DRUGS (6)
  1. ATRIPLA [Suspect]
     Active Substance: EFAVIRENZ\EMTRICITABINE\TENOFOVIR DISOPROXIL FUMARATE
     Indication: HIV INFECTION
     Dosage: UNK
     Route: 065
     Dates: start: 20090609, end: 20130924
  2. SODIUM BICARBONATE. [Concomitant]
     Active Substance: SODIUM BICARBONATE
     Dosage: 1 G, BID
  3. CRESTOR [Concomitant]
     Active Substance: ROSUVASTATIN CALCIUM
  4. ZOXAN                              /00639302/ [Concomitant]
  5. UVEDOSE [Concomitant]
     Active Substance: CHOLECALCIFEROL
  6. APROVEL [Concomitant]
     Active Substance: IRBESARTAN
     Dosage: 1 DF, QD

REACTIONS (2)
  - Acute kidney injury [Not Recovered/Not Resolved]
  - Peritoneal dialysis [Recovered/Resolved]

NARRATIVE: CASE EVENT DATE: 20130924
